FAERS Safety Report 19386355 (Version 2)
Quarter: 2021Q2

REPORT INFORMATION
  Report Type: Report from Study
  Country: GB (occurrence: GB)
  Receive Date: 20210608
  Receipt Date: 20210615
  Transmission Date: 20210717
  Serious: Yes (Other)
  Sender: FDA-Public Use
  Company Number: GB-ORION CORPORATION ORION PHARMA-21_00014710

PATIENT

DRUGS (4)
  1. IMRALDI [Suspect]
     Active Substance: ADALIMUMAB
     Indication: RHEUMATOID ARTHRITIS
     Dosage: EVERY 2 WEEKS
     Route: 058
  2. METHOTREXATE (TRADE NAME UNKNOWN) [Suspect]
     Active Substance: METHOTREXATE
     Indication: PRODUCT USED FOR UNKNOWN INDICATION
     Route: 065
  3. METHOTREXATE (TRADE NAME UNKNOWN) [Suspect]
     Active Substance: METHOTREXATE
     Route: 065
  4. IMRALDI [Suspect]
     Active Substance: ADALIMUMAB
     Dosage: EVERY 2 WEEKS
     Route: 058

REACTIONS (2)
  - Arthritis [Unknown]
  - Malignant melanoma [Unknown]
